FAERS Safety Report 9417117 (Version 1)
Quarter: 2013Q3

REPORT INFORMATION
  Report Type: Report from Study
  Country: US (occurrence: US)
  Receive Date: 20130724
  Receipt Date: 20130724
  Transmission Date: 20140515
  Serious: Yes (Hospitalization)
  Sender: FDA-Public Use
  Company Number: US-SANOFI-AVENTIS-2013SA073372

PATIENT
  Age: 78 Year
  Sex: Male
  Weight: 66.5 kg

DRUGS (16)
  1. JEVTANA [Suspect]
     Indication: PROSTATE CANCER METASTATIC
     Route: 042
     Dates: start: 20120731, end: 20120731
  2. JEVTANA [Suspect]
     Indication: PROSTATE CANCER METASTATIC
     Route: 042
     Dates: start: 20121002, end: 20121002
  3. OCTREOTIDE [Suspect]
     Indication: PROSTATE CANCER METASTATIC
     Route: 030
     Dates: start: 20121009, end: 20121009
  4. OCTREOTIDE [Suspect]
     Indication: PROSTATE CANCER METASTATIC
     Dosage: LOADING DOSE
     Route: 030
     Dates: start: 20120731, end: 20120731
  5. ALLEGRA [Concomitant]
     Route: 065
     Dates: start: 20120213
  6. AMLODIPINE [Concomitant]
     Route: 065
     Dates: start: 20120616
  7. FUROSEMIDE [Concomitant]
     Route: 065
     Dates: start: 2012
  8. IBUPROFEN [Concomitant]
     Route: 065
     Dates: start: 20120809
  9. IMODIUM [Concomitant]
     Route: 065
     Dates: start: 20120809
  10. LANTUS [Concomitant]
     Route: 065
     Dates: start: 20110716
  11. METFORMIN [Concomitant]
     Route: 065
     Dates: start: 20101013
  12. PREDNISONE [Concomitant]
     Dates: start: 20120731
  13. TEMAZEPAM [Concomitant]
     Dates: start: 20070616
  14. TRIPTORELIN EMBONATE [Concomitant]
     Dates: start: 20111024
  15. VITAMIN D3 [Concomitant]
     Dates: start: 2011
  16. XGEVA [Concomitant]
     Dates: start: 20120716

REACTIONS (5)
  - Flank pain [Unknown]
  - Diabetes mellitus inadequate control [Unknown]
  - Fatigue [Unknown]
  - Ascites [Unknown]
  - Oedema peripheral [Unknown]
